FAERS Safety Report 8134423-4 (Version None)
Quarter: 2012Q1

REPORT INFORMATION
  Report Type: 
  Country: None (occurrence: None)
  Receive Date: 20120209
  Receipt Date: 20120127
  Transmission Date: 20120608
  Serious: Yes (Other)
  Sender: FDA-Public Use
  Company Number: S07-UKI-06367-01

PATIENT
  Age: 56 Year
  Sex: Female
  Weight: 71 kg

DRUGS (10)
  1. CITALOPRAM HYDROBROMIDE [Suspect]
     Indication: DEPRESSED MOOD
     Dosage: 20 MG (20 MG, 1 IN 1 D), ORAL
     Route: 048
     Dates: start: 20070727
  2. GLUCOSAMINE (GLUCOSAMINE) (GLUCOSAMINE) [Concomitant]
  3. LYRICA [Suspect]
     Indication: NEURALGIA
     Dosage: 375 MG (375 MG, 1 IN 1 D)
     Dates: start: 20071104
  4. LIDOCAINE [Concomitant]
  5. TRACE ELEMENTS AND MINERALS (TRACE ELEMENTS AND MINERALS) (TRACE ELEME [Concomitant]
  6. VITAMIN SUPPLEMENT (VITAMIN SUPPLEMENT) (VITAMIN SUPPLEMENT) [Concomitant]
  7. BISACODYL (BISACODYL) (BISACODYL) [Concomitant]
  8. COD LIVER OIL (COD-LIVER OIL) (COD-LIVER OIL) [Concomitant]
  9. GABAPENTIN [Suspect]
     Indication: NEURALGIA
     Dosage: 2700 MG (900 MG, 3 IN 1 D) 1800 MG (600 MG, 3 IN 1 D)
     Dates: start: 20070101, end: 20071103
  10. GABAPENTIN [Suspect]
     Indication: NEURALGIA
     Dosage: 2700 MG (900 MG, 3 IN 1 D) 1800 MG (600 MG, 3 IN 1 D)
     Dates: start: 20070727, end: 20070101

REACTIONS (37)
  - CONSTIPATION [None]
  - JOINT SWELLING [None]
  - PAIN IN EXTREMITY [None]
  - POLLAKIURIA [None]
  - DRY EYE [None]
  - ATONIC URINARY BLADDER [None]
  - FLATULENCE [None]
  - DENTAL CARIES [None]
  - OEDEMA [None]
  - DIARRHOEA [None]
  - HEADACHE [None]
  - URINARY RETENTION [None]
  - GINGIVITIS [None]
  - AMNESIA [None]
  - GINGIVAL SWELLING [None]
  - INCONTINENCE [None]
  - ARTHRALGIA [None]
  - HYPOTENSION [None]
  - ANAL SPHINCTER ATONY [None]
  - PAIN [None]
  - DRUG INEFFECTIVE [None]
  - DRUG INTERACTION [None]
  - WEIGHT INCREASED [None]
  - COGNITIVE DISORDER [None]
  - VISUAL ACUITY REDUCED [None]
  - BRADYCARDIA [None]
  - ACTIVITIES OF DAILY LIVING IMPAIRED [None]
  - DISTURBANCE IN ATTENTION [None]
  - ANORGASMIA [None]
  - MYALGIA [None]
  - LIBIDO DECREASED [None]
  - QUALITY OF LIFE DECREASED [None]
  - PANIC REACTION [None]
  - TOOTH DISORDER [None]
  - BODY DYSMORPHIC DISORDER [None]
  - MUCOUS MEMBRANE DISORDER [None]
  - OEDEMA PERIPHERAL [None]
